FAERS Safety Report 9201119 (Version 1)
Quarter: 2013Q1

REPORT INFORMATION
  Report Type: Spontaneous
  Country: US (occurrence: None)
  Receive Date: 20130327
  Receipt Date: 20130327
  Transmission Date: 20140127
  Serious: Yes (Hospitalization, Other)
  Sender: FDA-Public Use
  Company Number: 2013-04979

PATIENT
  Age: 29 Year
  Sex: Male

DRUGS (7)
  1. METHOTREXATE [Suspect]
     Dosage: 2 MG, INTRAVENTRICULAR ON DAYS 4,6,8 OF BOTH CHEMOTHERAPEUTIC CYCLES
  2. CYTARABINE [Suspect]
     Dosage: 15 MG, INTRAVENTRICULAR ON DAYS 4,6,8 OF 1ST AND 2ND IMMUNO-CHEMOTHERAPEUTIC CYCLES
  3. HYDROCORTISONE ACETATE [Suspect]
     Dosage: 15 MG, INTRAVENTRICULAR ON DAYS 4,6,8, OF 1ST AND 2ND IMMUNO-CHEMOTHERAPEUTIC CYCLES
  4. DEXAMETHASONE [Suspect]
     Dosage: 5 MG/M2, BID, ON DAYS 3-10 OF 1ST AND 2ND IMMUNO-CHEMOTHERAPEUTIC CYCLES, ORAL
  5. CYCLOPHOSPHAMIDE [Suspect]
     Dosage: 250 MG/M2, BID, ON DAYS 4,5 AND 6 OF THE 2ND IMMUNO-CHEMOTHERAPEUTIC CYCLE, INTRAVENOUS
  6. CALCIUM FOLINATE [Suspect]
     Dosage: 15 MG/M2, QID, ON DAY 4 OF 1ST AND 2ND IMMUNO-CHEMOTHERAPEUTIC CYCLES, INTRAVENOUS
  7. RITUXIMAB (RITUXIMAB) [Suspect]
     Dosage: 375 MG/M2, ON DAYS 1 AND 3 OF 1ST AND 2ND IMMUNO-CHEMOTHERAPEUTIC CYCLES, INTRAVENOUS

REACTIONS (5)
  - Transplant rejection [None]
  - Nausea [None]
  - Neutropenia [None]
  - Clostridium difficile colitis [None]
  - Giardiasis [None]
